FAERS Safety Report 18414784 (Version 1)
Quarter: 2020Q4

REPORT INFORMATION
  Report Type: Spontaneous
  Country: US (occurrence: US)
  Receive Date: 20201021
  Receipt Date: 20201021
  Transmission Date: 20210114
  Serious: Yes (Other)
  Sender: FDA-Public Use
  Company Number: None

PATIENT
  Age: 73 Year
  Sex: Male
  Weight: 81.65 kg

DRUGS (2)
  1. LIPITOR [Concomitant]
     Active Substance: ATORVASTATIN CALCIUM
  2. ATORVASTATIN [Suspect]
     Active Substance: ATORVASTATIN
     Indication: BLOOD CHOLESTEROL
     Route: 048
     Dates: start: 20200915, end: 20200918

REACTIONS (12)
  - Diarrhoea [None]
  - Decreased appetite [None]
  - Abdominal discomfort [None]
  - Hemiparesis [None]
  - Facial paralysis [None]
  - Confusional state [None]
  - Fatigue [None]
  - Asthenia [None]
  - Balance disorder [None]
  - Dysphagia [None]
  - Speech disorder [None]
  - Memory impairment [None]

NARRATIVE: CASE EVENT DATE: 20200918
